FAERS Safety Report 8271803-0 (Version None)
Quarter: 2012Q2

REPORT INFORMATION
  Report Type: 
  Country: None (occurrence: None)
  Receive Date: 20120410
  Receipt Date: 20120327
  Transmission Date: 20120825
  Serious: Yes (Other)
  Sender: FDA-Public Use
  Company Number: US-ROCHE-1050672

PATIENT
  Sex: Male
  Weight: 57.885 kg

DRUGS (1)
  1. XELODA [Suspect]
     Indication: COLORECTAL CANCER METASTATIC
     Route: 048
     Dates: end: 20120322

REACTIONS (9)
  - MELANOCYTIC NAEVUS [None]
  - PAIN IN EXTREMITY [None]
  - NAIL INJURY [None]
  - FEELING HOT [None]
  - ABASIA [None]
  - LIP BLISTER [None]
  - ERYTHEMA [None]
  - OEDEMA PERIPHERAL [None]
  - SKIN EXFOLIATION [None]
